FAERS Safety Report 23316715 (Version 1)
Quarter: 2023Q4

REPORT INFORMATION
  Report Type: Report from Study
  Country: EG (occurrence: EG)
  Receive Date: 20231219
  Receipt Date: 20231219
  Transmission Date: 20240110
  Serious: Yes (Other)
  Sender: FDA-Public Use
  Company Number: EG-002147023-NVSC2022EG276158

PATIENT
  Age: 8 Year
  Sex: Female

DRUGS (3)
  1. OMNITROPE [Suspect]
     Active Substance: SOMATROPIN
     Indication: Growth hormone deficiency
     Dosage: 1 MG, QD (1 MG/DAY)
     Route: 058
     Dates: start: 20220222
  2. OMNITROPE [Suspect]
     Active Substance: SOMATROPIN
     Dosage: 1.1 MG, QD (INCREASED TO 1.1 MG/DAY) AFTER MAYBE 3-4 MONTHS
     Route: 058
     Dates: start: 202206
  3. OMNITROPE [Suspect]
     Active Substance: SOMATROPIN
     Dosage: 1.2 MG, QD (1.2 MG/DAY AFTER 3 MONTHS)
     Route: 058
     Dates: start: 20220901, end: 20221123

REACTIONS (6)
  - Blood pressure increased [Recovered/Resolved]
  - Headache [Recovering/Resolving]
  - Poor quality device used [Not Recovered/Not Resolved]
  - Wrong technique in product usage process [Not Recovered/Not Resolved]
  - Multiple use of single-use product [Not Recovered/Not Resolved]
  - Drug dose omission by device [Not Recovered/Not Resolved]

NARRATIVE: CASE EVENT DATE: 20220222
